FAERS Safety Report 10234945 (Version 1)
Quarter: 2014Q2

REPORT INFORMATION
  Report Type: Report from Study
  Country: CZ (occurrence: None)
  Receive Date: 20140520
  Receipt Date: 20140520
  Transmission Date: 20141212
  Serious: Yes (Hospitalization)
  Sender: FDA-Public Use
  Company Number: 2014PL000039

PATIENT
  Age: 34 Year
  Sex: Female
  Weight: 32 kg

DRUGS (5)
  1. IMURAN (AZATHIOPRINE) [Suspect]
     Indication: COLITIS ULCERATIVE
     Route: 048
     Dates: start: 20130826, end: 20130920
  2. PLACEBO [Suspect]
     Indication: COLITIS ULCERATIVE
     Dates: start: 20130726, end: 20130826
  3. PREDNISON (PREDNISONE) [Concomitant]
  4. MINISISTON (ETHINYLESTRADIOL, LEVONORGESTREL) [Concomitant]
  5. LEVONORGESTREL [Concomitant]

REACTIONS (4)
  - Anaemia [None]
  - Alanine aminotransferase increased [None]
  - Aspartate aminotransferase increased [None]
  - C-reactive protein increased [None]
